FAERS Safety Report 6940160-1 (Version None)
Quarter: 2010Q3

REPORT INFORMATION
  Report Type: 
  Country: None (occurrence: None)
  Receive Date: 20100825
  Receipt Date: 20090914
  Transmission Date: 20110219
  Serious: No
  Sender: FDA-Public Use
  Company Number: A0807242A

PATIENT
  Age: 70 Year
  Sex: Female

DRUGS (11)
  1. BEXXAR [Suspect]
     Indication: NON-HODGKIN'S LYMPHOMA
     Route: 042
     Dates: start: 20090827
  2. IODINE [Suspect]
     Dates: start: 20090801, end: 20090901
  3. POTASSIUM [Suspect]
     Dates: start: 20090801, end: 20090901
  4. CIPRO [Concomitant]
  5. OXYBUTYNIN [Concomitant]
  6. PROZAC [Concomitant]
  7. FLUOXETINE [Concomitant]
  8. METFORMIN [Concomitant]
  9. LEVOTHYROXINE [Concomitant]
  10. LITHIUM CARBONATE [Concomitant]
  11. COLACE [Concomitant]

REACTIONS (4)
  - BALANCE DISORDER [None]
  - GASTROINTESTINAL DISORDER [None]
  - MALAISE [None]
  - NAUSEA [None]
